FAERS Safety Report 17565404 (Version 1)
Quarter: 2020Q1

REPORT INFORMATION
  Report Type: Spontaneous
  Country: US (occurrence: US)
  Receive Date: 20200320
  Receipt Date: 20200320
  Transmission Date: 20200409
  Serious: No
  Sender: FDA-Public Use
  Company Number: US-PFIZER INC-2020118400

PATIENT
  Age: 56 Year
  Sex: Female
  Weight: 72.57 kg

DRUGS (2)
  1. LISINOPRIL. [Concomitant]
     Active Substance: LISINOPRIL
     Indication: HYPERTENSION
     Dosage: 10 MG, DAILY
     Route: 048
  2. EFFEXOR XR [Suspect]
     Active Substance: VENLAFAXINE HYDROCHLORIDE
     Indication: BEHAVIOUR DISORDER
     Dosage: 150 MG, DAILY
     Route: 048

REACTIONS (7)
  - Paraesthesia [Not Recovered/Not Resolved]
  - Product dose omission [Unknown]
  - Drug ineffective [Not Recovered/Not Resolved]
  - Product use in unapproved indication [Unknown]
  - Tinnitus [Not Recovered/Not Resolved]
  - Off label use [Unknown]
  - Feeling abnormal [Unknown]
